FAERS Safety Report 18493312 (Version 22)
Quarter: 2022Q4

REPORT INFORMATION
  Report Type: Report from Study
  Country: CL (occurrence: CL)
  Receive Date: 20201111
  Receipt Date: 20221116
  Transmission Date: 20230113
  Serious: Yes (Death, Hospitalization, Other)
  Sender: FDA-Public Use
  Company Number: CL-TAKEDA-CL202029400

PATIENT
  Age: 15 Year
  Sex: Male
  Weight: 45 kg

DRUGS (4)
  1. IDURSULFASE [Suspect]
     Active Substance: IDURSULFASE
     Indication: Mucopolysaccharidosis II
     Dosage: 2 MG/ML, 1/WEEK
     Route: 042
  2. IDURSULFASE [Suspect]
     Active Substance: IDURSULFASE
     Dosage: UNK UNK, 1/WEEK
     Route: 042
  3. IDURSULFASE [Suspect]
     Active Substance: IDURSULFASE
     Dosage: 0.5 MILLIGRAM/KILOGRAM, 1/WEEK
     Route: 042
  4. IDURSULFASE [Suspect]
     Active Substance: IDURSULFASE
     Dosage: 0.5 MILLIGRAM/KILOGRAM
     Route: 042

REACTIONS (26)
  - Post procedural complication [Fatal]
  - Aspiration [Recovering/Resolving]
  - Device occlusion [Recovering/Resolving]
  - Gastric perforation [Recovering/Resolving]
  - Pneumonia [Recovering/Resolving]
  - Generalised tonic-clonic seizure [Recovered/Resolved]
  - Seizure [Unknown]
  - Peritonitis [Unknown]
  - Mass [Recovered/Resolved]
  - Lung abscess [Recovered/Resolved]
  - Epilepsy [Recovered/Resolved]
  - Sleep disorder [Unknown]
  - Breath sounds abnormal [Recovering/Resolving]
  - Respiratory symptom [Not Recovered/Not Resolved]
  - Bronchitis [Unknown]
  - Oxygen saturation abnormal [Recovering/Resolving]
  - Increased bronchial secretion [Recovering/Resolving]
  - Rhinorrhoea [Recovered/Resolved]
  - Mobility decreased [Recovering/Resolving]
  - Myalgia [Recovered/Resolved]
  - Haemodynamic instability [Recovering/Resolving]
  - Pyrexia [Recovered/Resolved]
  - Dyspnoea [Recovered/Resolved]
  - Tachycardia [Recovered/Resolved]
  - Tachypnoea [Recovered/Resolved]
  - Product dose omission issue [Unknown]

NARRATIVE: CASE EVENT DATE: 20201020
